FAERS Safety Report 5839161-6 (Version None)
Quarter: 2008Q3

REPORT INFORMATION
  Report Type: 
  Country: None (occurrence: None)
  Receive Date: 20080808
  Receipt Date: 20080730
  Transmission Date: 20090109
  Serious: Yes (Life-Threatening, Hospitalization, Congenital Anomaly, Other)
  Sender: FDA-Public Use
  Company Number: US-PFIZER INC-2008050217

PATIENT
  Sex: Male

DRUGS (5)
  1. ZOLOFT [Suspect]
     Indication: PREMENSTRUAL SYNDROME
     Route: 064
  2. ZOLOFT [Suspect]
     Indication: DEPRESSION
  3. ZOLOFT [Suspect]
     Indication: ANXIETY
  4. AMBIEN [Concomitant]
  5. HYDROCODONE BITARTRATE [Concomitant]

REACTIONS (8)
  - ABORTION SPONTANEOUS [None]
  - COLLAPSE OF LUNG [None]
  - DRUG EXPOSURE DURING PREGNANCY [None]
  - EAR INFECTION [None]
  - MATERNAL DRUGS AFFECTING FOETUS [None]
  - POST PROCEDURAL COMPLICATION [None]
  - PREGNANCY [None]
  - TRANSPOSITION OF THE GREAT VESSELS [None]
